FAERS Safety Report 5904608-3 (Version None)
Quarter: 2008Q4

REPORT INFORMATION
  Report Type: 
  Country: None (occurrence: None)
  Receive Date: 20081001
  Receipt Date: 20080922
  Transmission Date: 20090506
  Serious: Yes (Other)
  Sender: FDA-Public Use
  Company Number: ES-ASTRAZENECA-2008AC02534

PATIENT
  Age: 37 Year
  Sex: Female

DRUGS (5)
  1. BUPIVACAINE [Suspect]
     Indication: SPINAL ANAESTHESIA
     Route: 037
  2. BUPIVACAINE [Suspect]
     Indication: CAESAREAN SECTION
     Route: 037
  3. FENTANYL [Concomitant]
     Indication: SPINAL ANAESTHESIA
     Route: 037
  4. FENTANYL [Concomitant]
     Indication: CAESAREAN SECTION
     Route: 037
  5. INSULIN THERAPY [Concomitant]
     Indication: GESTATIONAL DIABETES

REACTIONS (1)
  - MENINGITIS ASEPTIC [None]
